FAERS Safety Report 13923607 (Version 1)
Quarter: 2017Q3

REPORT INFORMATION
  Report Type: Spontaneous
  Country: US (occurrence: US)
  Receive Date: 20170830
  Receipt Date: 20170830
  Transmission Date: 20171127
  Serious: Yes (Disabling)
  Sender: FDA-Public Use
  Company Number: None

PATIENT
  Sex: Male
  Weight: 101.25 kg

DRUGS (1)
  1. CIPRFLOXACN [Suspect]
     Active Substance: CIPROFLOXACIN
     Indication: PROSTATITIS
     Dosage: ?          QUANTITY:1 TABLET(S); 3 TIMES A DAY ORAL?
     Route: 048
     Dates: start: 20170822, end: 20170827

REACTIONS (9)
  - Nasopharyngitis [None]
  - Burning sensation [None]
  - Paraesthesia [None]
  - Chills [None]
  - Musculoskeletal stiffness [None]
  - Arthralgia [None]
  - Hypoaesthesia [None]
  - Night sweats [None]
  - Tendon pain [None]

NARRATIVE: CASE EVENT DATE: 20170822
